FAERS Safety Report 9440318 (Version 2)
Quarter: 2013Q4

REPORT INFORMATION
  Report Type: Spontaneous
  Country: FR (occurrence: FR)
  Receive Date: 20130805
  Receipt Date: 20131017
  Transmission Date: 20140711
  Serious: Yes (Other)
  Sender: FDA-Public Use
  Company Number: FR-PFIZER INC-2013223331

PATIENT
  Age: 63 Year
  Sex: Male

DRUGS (11)
  1. RAPAMUNE [Suspect]
     Indication: PROPHYLAXIS AGAINST TRANSPLANT REJECTION
     Dosage: UNK
     Route: 048
     Dates: start: 20130219
  2. BLEOMYCINE BELLON [Suspect]
     Indication: KAPOSI^S SARCOMA
     Dosage: UNK
     Dates: start: 20130117
  3. CALCIDIA [Concomitant]
  4. CELECTOL [Concomitant]
  5. AMLOR [Concomitant]
  6. VESICARE [Concomitant]
  7. OMEXEL [Concomitant]
  8. LEVOTHYROX [Concomitant]
  9. AZANTAC [Concomitant]
  10. LYRICA [Concomitant]
  11. CELLCEPT [Concomitant]

REACTIONS (5)
  - Skin hyperpigmentation [Not Recovered/Not Resolved]
  - Oedema peripheral [Not Recovered/Not Resolved]
  - Neuralgia [Not Recovered/Not Resolved]
  - Palmar-plantar erythrodysaesthesia syndrome [Not Recovered/Not Resolved]
  - Scleroderma [Not Recovered/Not Resolved]
